FAERS Safety Report 9165803 (Version 1)
Quarter: 2013Q1

REPORT INFORMATION
  Report Type: Spontaneous
  Country: US (occurrence: None)
  Receive Date: 20130228
  Receipt Date: 20130228
  Transmission Date: 20140127
  Serious: Yes (Life-Threatening)
  Sender: FDA-Public Use
  Company Number: 1612589

PATIENT
  Age: 2 Year
  Sex: Male

DRUGS (1)
  1. (VINCRISTINE SULFATE) [Suspect]
     Indication: CONGENITAL RETINOBLASTOMA

REACTIONS (14)
  - Cardiac arrest [None]
  - Respiratory failure [None]
  - Neuropathy peripheral [None]
  - Irritability [None]
  - Hypotonia [None]
  - Bone marrow failure [None]
  - Mucosal inflammation [None]
  - Inappropriate antidiuretic hormone secretion [None]
  - Gastrointestinal hypomotility [None]
  - Accidental overdose [None]
  - Wrong technique in drug usage process [None]
  - Pyrexia [None]
  - Diastolic dysfunction [None]
  - Toxicity to various agents [None]
